FAERS Safety Report 13806820 (Version 4)
Quarter: 2018Q1

REPORT INFORMATION
  Report Type: Report from Study
  Country: US (occurrence: US)
  Receive Date: 20170728
  Receipt Date: 20180125
  Transmission Date: 20180508
  Serious: No
  Sender: FDA-Public Use
  Company Number: US-AMGEN-USASL2017106131

PATIENT
  Age: 64 Year
  Sex: Male

DRUGS (1)
  1. REPATHA [Suspect]
     Active Substance: EVOLOCUMAB
     Indication: STENT PLACEMENT
     Dosage: 140 MG, Q2WK
     Route: 065

REACTIONS (5)
  - Productive cough [Unknown]
  - Malaise [Unknown]
  - Dysphonia [Unknown]
  - Lung disorder [Unknown]
  - Oropharyngeal pain [Unknown]
